FAERS Safety Report 16942546 (Version 1)
Quarter: 2019Q4

REPORT INFORMATION
  Report Type: Spontaneous
  Country: FR (occurrence: FR)
  Receive Date: 20191021
  Receipt Date: 20191021
  Transmission Date: 20200122
  Serious: Yes (Other)
  Sender: FDA-Public Use
  Company Number: FR-009507513-1910FRA010781

PATIENT
  Age: 75 Year
  Sex: Male

DRUGS (1)
  1. VELMETIA [Suspect]
     Active Substance: METFORMIN\SITAGLIPTIN
     Indication: TYPE 2 DIABETES MELLITUS
     Dosage: 50/1000 MG, BID (2/DAY) IN THE MORNING AND THE NIGHT
     Route: 048
     Dates: end: 201909

REACTIONS (1)
  - Creatinine urine increased [Recovering/Resolving]

NARRATIVE: CASE EVENT DATE: 201909
